FAERS Safety Report 6385197-9 (Version None)
Quarter: 2009Q4

REPORT INFORMATION
  Report Type: 
  Country: None (occurrence: None)
  Receive Date: 20091002
  Receipt Date: 20081205
  Transmission Date: 20100525
  Serious: No
  Sender: FDA-Public Use
  Company Number: US-ASTRAZENECA-2008UW02320

PATIENT
  Age: 22068 Day
  Sex: Female

DRUGS (1)
  1. ARIMIDEX [Suspect]
     Dosage: UNKNOWN
     Route: 048
     Dates: start: 20070101

REACTIONS (12)
  - ANXIETY [None]
  - DIZZINESS [None]
  - FLUSHING [None]
  - HYPOAESTHESIA [None]
  - JOINT STIFFNESS [None]
  - LOW DENSITY LIPOPROTEIN INCREASED [None]
  - MUSCLE STRAIN [None]
  - MYALGIA [None]
  - NAUSEA [None]
  - PAIN IN EXTREMITY [None]
  - VAGINAL ODOUR [None]
  - VULVOVAGINAL DRYNESS [None]
